FAERS Safety Report 6229374-6 (Version None)
Quarter: 2009Q2

REPORT INFORMATION
  Report Type: 
  Country: None (occurrence: None)
  Receive Date: 20090610
  Receipt Date: 20080716
  Transmission Date: 20091009
  Serious: Yes (Other)
  Sender: FDA-Public Use
  Company Number: 2008S1012756

PATIENT
  Age: 55 Year
  Sex: Female
  Weight: 64.8644 kg

DRUGS (2)
  1. ACYCLOVIR [Suspect]
     Indication: ERYTHEMA MULTIFORME
     Dosage: 400 MG, TWICE A DAY; ORAL
     Route: 048
     Dates: start: 20080303, end: 20080509
  2. AMLODIPINE /00972402/ [Concomitant]

REACTIONS (2)
  - DRUG INEFFECTIVE [None]
  - ERYTHEMA MULTIFORME [None]
